FAERS Safety Report 6690507-9 (Version None)
Quarter: 2010Q2

REPORT INFORMATION
  Report Type: 
  Country: None (occurrence: None)
  Receive Date: 20100420
  Receipt Date: 20100420
  Transmission Date: 20101027
  Serious: Yes (Other)
  Sender: FDA-Public Use
  Company Number: None

PATIENT
  Age: 13 Year
  Sex: Female
  Weight: 53.5244 kg

DRUGS (1)
  1. SULFAMETHOXAZOLE AND TRIMETHOPRIM [Suspect]
     Indication: ACNE
     Dosage: 1X/DAY AM PO
     Route: 048
     Dates: start: 20100413, end: 20100419

REACTIONS (5)
  - ABDOMINAL PAIN UPPER [None]
  - FEELING ABNORMAL [None]
  - GRAND MAL CONVULSION [None]
  - HEADACHE [None]
  - SOMNOLENCE [None]
